FAERS Safety Report 8818120 (Version 1)
Quarter: 2012Q4

REPORT INFORMATION
  Report Type: 
  Country: CZ (occurrence: CZ)
  Receive Date: 20121001
  Receipt Date: 20121001
  Transmission Date: 20130627
  Serious: Yes (Other)
  Sender: FDA-Public Use
  Company Number: CZ-ROXANE LABORATORIES, INC.-2012-EU-04028GD

PATIENT
  Age: 42 Year
  Sex: Male

DRUGS (1)
  1. SERTRALINE [Suspect]
     Indication: DEPRESSION
     Dosage: 50 mg

REACTIONS (9)
  - Movement disorder [Recovered/Resolved]
  - Abnormal sleep-related event [Recovered/Resolved]
  - Restless legs syndrome [Recovered/Resolved]
  - Periodic limb movement disorder [Recovered/Resolved]
  - Motor dysfunction [Recovered/Resolved]
  - Movement disorder [Recovered/Resolved]
  - Poor quality sleep [Recovered/Resolved]
  - Somnolence [Unknown]
  - Pruritus [Recovered/Resolved]
